FAERS Safety Report 5479495-0 (Version None)
Quarter: 2007Q3

REPORT INFORMATION
  Report Type: 
  Country: None (occurrence: None)
  Receive Date: 20070913
  Receipt Date: 20070504
  Transmission Date: 20080115
  Serious: Yes (Other)
  Sender: FDA-Public Use
  Company Number: 36784

PATIENT
  Age: 43 Year
  Sex: Female
  Weight: 67.1324 kg

DRUGS (5)
  1. PACLITAXEL [Suspect]
     Indication: BREAST CANCER
     Dosage: 300 MG IV INFUSION OVER 3  HOUR
     Route: 042
     Dates: start: 20070228
  2. PACLITAXEL [Suspect]
     Indication: BREAST CANCER
     Dosage: 300 MG IV INFUSION OVER 3  HOUR
     Route: 042
     Dates: start: 20070315
  3. PACLITAXEL [Suspect]
     Indication: BREAST CANCER
     Dosage: 300 MG IV INFUSION OVER 3  HOUR
     Route: 042
     Dates: start: 20070328
  4. ZOLOFT [Concomitant]
  5. XANAX [Concomitant]

REACTIONS (2)
  - COUGH [None]
  - PNEUMONITIS [None]
